FAERS Safety Report 7129946-0 (Version None)
Quarter: 2010Q4

REPORT INFORMATION
  Report Type: 
  Country: None (occurrence: None)
  Receive Date: 20101130
  Receipt Date: 20100813
  Transmission Date: 20110411
  Serious: Yes (Hospitalization)
  Sender: FDA-Public Use
  Company Number: US-AMGEN-ICO246540

PATIENT

DRUGS (1)
  1. DARBEPOETIN ALFA [Suspect]
     Indication: RENAL FAILURE CHRONIC
     Dosage: UNK UNK, QMO
     Route: 058
     Dates: start: 20060927

REACTIONS (3)
  - CARDIOMEGALY [None]
  - CHEST PAIN [None]
  - WOUND COMPLICATION [None]
